FAERS Safety Report 21196992 (Version 1)
Quarter: 2022Q3

REPORT INFORMATION
  Report Type: Report from Study
  Country: US (occurrence: None)
  Receive Date: 20220810
  Receipt Date: 20220810
  Transmission Date: 20221027
  Serious: Yes (Other)
  Sender: FDA-Public Use
  Company Number: US-Merck Healthcare KGaA-9329455

PATIENT
  Age: 65 Year
  Sex: Female
  Weight: 86 kg

DRUGS (2)
  1. MAVENCLAD [Suspect]
     Active Substance: CLADRIBINE
     Indication: Multiple sclerosis
     Dosage: YEAR ONE THERAPY
     Route: 048
     Dates: start: 20210725
  2. MAVENCLAD [Suspect]
     Active Substance: CLADRIBINE
     Dosage: YEAR TWO MOTH ONE THERAPY.
     Route: 048
     Dates: start: 20220723, end: 20220727

REACTIONS (14)
  - Diabetes mellitus [Recovering/Resolving]
  - Blood glucose increased [Recovering/Resolving]
  - Peripheral swelling [Recovering/Resolving]
  - Blood potassium decreased [Recovering/Resolving]
  - Asthenia [Unknown]
  - Mobility decreased [Unknown]
  - Fall [Unknown]
  - Limb injury [Unknown]
  - Muscle strain [Unknown]
  - Band sensation [Not Recovered/Not Resolved]
  - Escherichia urinary tract infection [Recovering/Resolving]
  - Feeling abnormal [Recovering/Resolving]
  - Muscular weakness [Recovering/Resolving]
  - Gait disturbance [Recovering/Resolving]

NARRATIVE: CASE EVENT DATE: 20220101
